FAERS Safety Report 25929647 (Version 1)
Quarter: 2025Q4

REPORT INFORMATION
  Report Type: Spontaneous
  Country: US (occurrence: US)
  Receive Date: 20251016
  Receipt Date: 20251016
  Transmission Date: 20260118
  Serious: Yes (Other)
  Sender: MICRO LABS LIMITED
  Company Number: US-MICRO LABS LIMITED-ML2025-05311

PATIENT
  Age: 70 Year
  Sex: Female

DRUGS (1)
  1. BIMATOPROST [Suspect]
     Active Substance: BIMATOPROST
     Indication: Visual field defect
     Dosage: STARTED IN BOTH EYES
     Route: 061
     Dates: start: 2018

REACTIONS (1)
  - Retinoschisis [Recovered/Resolved]
